FAERS Safety Report 8480249-1 (Version None)
Quarter: 2012Q2

REPORT INFORMATION
  Report Type: 
  Country: None (occurrence: None)
  Receive Date: 20120629
  Receipt Date: 20120423
  Transmission Date: 20120825
  Serious: Yes (Other)
  Sender: FDA-Public Use
  Company Number: PHHY2012DE022416

PATIENT
  Sex: Female
  Weight: 73 kg

DRUGS (7)
  1. DIURETICS [Concomitant]
     Dates: end: 20090924
  2. EXFORGE [Suspect]
     Dosage: 160/10  MG, DAILY
     Route: 048
     Dates: start: 20090311, end: 20110101
  3. SIMVA [Concomitant]
     Indication: HYPERLIPIDAEMIA
     Dosage: 40 MG, QD
     Dates: start: 20090101
  4. EXFORGE [Suspect]
     Dosage: 160/10 MG, DAILY
     Route: 048
     Dates: start: 20071120, end: 20080107
  5. EXFORGE [Suspect]
     Dosage: 160/ 5 MG, DAILY
     Route: 048
     Dates: start: 20080107, end: 20090311
  6. ORAL ANTIDIABETICS [Concomitant]
  7. PLATELET AGGREGATION INHIBITORS [Concomitant]

REACTIONS (1)
  - BLOOD PRESSURE INCREASED [None]
